FAERS Safety Report 9658535 (Version 1)
Quarter: 2013Q4

REPORT INFORMATION
  Report Type: Spontaneous
  Country: US (occurrence: US)
  Receive Date: 20131030
  Receipt Date: 20131030
  Transmission Date: 20140711
  Serious: No
  Sender: FDA-Public Use
  Company Number: US-PURDUE-USA-2011-0076393

PATIENT
  Sex: Male

DRUGS (1)
  1. OXYCONTIN (NDA 22-272) [Suspect]
     Indication: PAIN
     Dosage: 80 MG, TID
     Route: 048
     Dates: start: 201012

REACTIONS (6)
  - Medication residue present [Unknown]
  - Unevaluable event [Unknown]
  - Foreign body [Unknown]
  - Abdominal distension [Unknown]
  - Inadequate analgesia [Unknown]
  - Abdominal pain upper [Unknown]
